FAERS Safety Report 18608857 (Version 3)
Quarter: 2021Q1

REPORT INFORMATION
  Report Type: Other
  Country: US (occurrence: US)
  Receive Date: 20201213
  Receipt Date: 20210312
  Transmission Date: 20210419
  Serious: Yes (Hospitalization, Other)
  Sender: FDA-Public Use
  Company Number: US-INTERCEPT-PM2020002458

PATIENT
  Age: 74 Year
  Sex: Female
  Weight: 58 kg

DRUGS (21)
  1. URSODIOL. [Concomitant]
     Active Substance: URSODIOL
     Indication: PRIMARY BILIARY CHOLANGITIS
     Dosage: 1200 MILLIGRAM, QD
     Dates: start: 1994
  2. TRIAMCINOLONE [Concomitant]
     Active Substance: TRIAMCINOLONE
     Indication: DERMATITIS
     Dosage: UNK, PRN
     Route: 061
  3. URSODIOL. [Concomitant]
     Active Substance: URSODIOL
     Dosage: 900 MILLIGRAM
     Dates: start: 20170411
  4. HUMULIN 70/30 [Concomitant]
     Active Substance: INSULIN HUMAN
     Dosage: 25 INTERNATIONAL UNIT
     Route: 058
  5. METFORMIN [Concomitant]
     Active Substance: METFORMIN HYDROCHLORIDE
     Indication: DIABETES MELLITUS
     Dosage: 500 MILLIGRAM
     Route: 048
  6. DAILY MULTIVITAMIN [Concomitant]
     Active Substance: VITAMINS
     Dosage: UNK UNK, QD
  7. ASPIRIN (E.C.) [Concomitant]
     Active Substance: ASPIRIN
     Dosage: 81 MILLIGRAM
     Route: 048
  8. CLOPIDOGREL [Concomitant]
     Active Substance: CLOPIDOGREL BISULFATE
     Dosage: 75 MILLIGRAM
     Route: 048
  9. METFORMIN [Concomitant]
     Active Substance: METFORMIN HYDROCHLORIDE
     Indication: POST PROCEDURAL HYPOTHYROIDISM
  10. METFORMIN [Concomitant]
     Active Substance: METFORMIN HYDROCHLORIDE
     Indication: HYPERTENSION
  11. NITROGLYCERIN. [Concomitant]
     Active Substance: NITROGLYCERIN
     Dosage: 0.4 MILLIGRAM
     Route: 060
  12. OCALIVA [Suspect]
     Active Substance: OBETICHOLIC ACID
     Indication: PRIMARY BILIARY CHOLANGITIS
     Dosage: 5 MILLIGRAM, QD
     Route: 048
     Dates: start: 201701
  13. OXYCODONE [Concomitant]
     Active Substance: OXYCODONE
     Dosage: 5 MILLIGRAM
     Route: 048
  14. PREDNISONE. [Concomitant]
     Active Substance: PREDNISONE
     Dosage: 40 MILLIGRAM
     Route: 048
  15. ATENOLOL. [Concomitant]
     Active Substance: ATENOLOL
     Dosage: 25 MILLIGRAM
     Route: 048
  16. DOXAZOSIN [Concomitant]
     Active Substance: DOXAZOSIN MESYLATE
     Indication: HYPERTENSION
     Dosage: 2 MILLIGRAM
     Route: 048
  17. LEVOTHYROXINE. [Concomitant]
     Active Substance: LEVOTHYROXINE
     Dosage: 0.112 MILLIGRAM
  18. METFORMIN [Concomitant]
     Active Substance: METFORMIN HYDROCHLORIDE
     Indication: TYPE V HYPERLIPIDAEMIA
  19. HYDROCHLOROTHIAZIDE. [Concomitant]
     Active Substance: HYDROCHLOROTHIAZIDE
     Indication: HYPERTENSION
     Dosage: 12.5 MILLIGRAM
     Route: 048
  20. ISOSORBIDE MONONITRATE. [Concomitant]
     Active Substance: ISOSORBIDE MONONITRATE
     Dosage: 30 MILLIGRAM
     Route: 048
  21. TELMISARTAN. [Concomitant]
     Active Substance: TELMISARTAN
     Dosage: 40 MILLIGRAM
     Route: 048

REACTIONS (28)
  - Angioplasty [Unknown]
  - Lymphadenopathy [Unknown]
  - Splenomegaly [Recovered/Resolved]
  - Splenic cyst [Unknown]
  - Dry skin [Unknown]
  - Erythema [Unknown]
  - Gait disturbance [Not Recovered/Not Resolved]
  - Cellulitis [Unknown]
  - Peripheral vascular disorder [Unknown]
  - Weight decreased [Unknown]
  - Joint swelling [Unknown]
  - Tenderness [Unknown]
  - Spider naevus [Unknown]
  - Pain in extremity [Recovering/Resolving]
  - Percutaneous coronary intervention [Unknown]
  - Peripheral ischaemia [Recovering/Resolving]
  - Portal hypertension [Unknown]
  - Frequent bowel movements [Not Recovered/Not Resolved]
  - Diarrhoea [Unknown]
  - Stent placement [Unknown]
  - Adrenal adenoma [Unknown]
  - Skin warm [Unknown]
  - Peripheral swelling [Unknown]
  - Thrombocytopenia [Not Recovered/Not Resolved]
  - Blood creatinine abnormal [Unknown]
  - Renal cyst [Unknown]
  - Anaemia [Not Recovered/Not Resolved]
  - Enteritis [Unknown]

NARRATIVE: CASE EVENT DATE: 202003
